FAERS Safety Report 7901281-X (Version None)
Quarter: 2011Q4

REPORT INFORMATION
  Report Type: 
  Country: None (occurrence: None)
  Receive Date: 20111108
  Receipt Date: 20111101
  Transmission Date: 20120403
  Serious: Yes (Other)
  Sender: FDA-Public Use
  Company Number: PHEH2011US08446

PATIENT
  Sex: Male

DRUGS (1)
  1. EXJADE [Suspect]
     Dosage: 1500 MG, QD

REACTIONS (5)
  - MALAISE [None]
  - CONSTIPATION [None]
  - ASTHENIA [None]
  - TREMOR [None]
  - RECTAL HAEMORRHAGE [None]
